FAERS Safety Report 9226802 (Version 3)
Quarter: 2015Q3

REPORT INFORMATION
  Report Type: Spontaneous
  Country: US (occurrence: US)
  Receive Date: 20130412
  Receipt Date: 20150717
  Transmission Date: 20151125
  Serious: Yes (Hospitalization)
  Sender: FDA-Public Use
  Company Number: US-BAYER-2013-045151

PATIENT
  Age: 46 Year
  Sex: Female
  Weight: 90.7 kg

DRUGS (12)
  1. KAOLIN [Concomitant]
     Active Substance: KAOLIN
  2. OCELLA [Suspect]
     Active Substance: DROSPIRENONE\ETHINYL ESTRADIOL
     Dosage: UNK
     Dates: start: 201003, end: 201012
  3. TOPAMAX [Concomitant]
     Active Substance: TOPIRAMATE
  4. ALPRAZOLAM. [Concomitant]
     Active Substance: ALPRAZOLAM
     Indication: ANXIETY
     Dosage: 2 MG, UNK
  5. TYLENOL [CHLORPHENAM MAL,DEXTROMET HBR,PARACET,PSEUDOEPH HCL] [Concomitant]
     Dosage: UNK, PRN
  6. BACLOFEN. [Concomitant]
     Active Substance: BACLOFEN
     Indication: MIGRAINE
     Dosage: 10 MG, UNK
  7. XANAX [Concomitant]
     Active Substance: ALPRAZOLAM
  8. GABAPENTIN. [Concomitant]
     Active Substance: GABAPENTIN
  9. ZARAH [Suspect]
     Active Substance: DROSPIRENONE\ETHINYL ESTRADIOL
  10. YASMIN [Suspect]
     Active Substance: DROSPIRENONE\ETHINYL ESTRADIOL
     Dosage: UNK
     Dates: start: 200206, end: 200211
  11. VERAPAMIL [Concomitant]
     Active Substance: VERAPAMIL HYDROCHLORIDE
     Dosage: 240 MG, UNK
  12. TOPIRAMATE. [Concomitant]
     Active Substance: TOPIRAMATE
     Indication: MIGRAINE
     Dosage: 100 MG, UNK

REACTIONS (9)
  - General physical health deterioration [None]
  - Depression [None]
  - Pulmonary embolism [None]
  - Anxiety [None]
  - Injury [None]
  - Pain [None]
  - Abdominal pain [None]
  - Emotional distress [None]
  - Cyanosis [None]

NARRATIVE: CASE EVENT DATE: 201012
